FAERS Safety Report 14232310 (Version 1)
Quarter: 2017Q4

REPORT INFORMATION
  Report Type: Spontaneous
  Country: GB (occurrence: GB)
  Receive Date: 20171128
  Receipt Date: 20171128
  Transmission Date: 20180321
  Serious: Yes (Other)
  Sender: FDA-Public Use
  Company Number: GB-009507513-1711GBR010812

PATIENT
  Age: 78 Year
  Sex: Female
  Weight: 74 kg

DRUGS (12)
  1. ATORVASTATIN [Concomitant]
     Active Substance: ATORVASTATIN
     Dosage: 1 DF, QD
     Dates: start: 20170117, end: 20171013
  2. ASPIRIN. [Concomitant]
     Active Substance: ASPIRIN
     Dosage: 2 DF, QD
     Dates: start: 20170725
  3. RAMIPRIL. [Concomitant]
     Active Substance: RAMIPRIL
     Dosage: 1 DF, URGENT, REVIEW WITH DOCTOR.
     Dates: start: 20170908
  4. ESTRADIOL. [Concomitant]
     Active Substance: ESTRADIOL
     Dosage: 1 DAILY FOR 2 WEEKS THEN 1 TWICE WEEKLY FOR 3 M
     Dates: start: 20170117, end: 20171013
  5. MOVICOL [Concomitant]
     Active Substance: POLYETHYLENE GLYCOL 3350\POTASSIUM CHLORIDE\SODIUM BICARBONATE\SODIUM CHLORIDE
     Dosage: USE AS DIRECTED
     Dates: start: 20170117, end: 20171013
  6. ALENDRONATE SODIUM. [Suspect]
     Active Substance: ALENDRONATE SODIUM
     Dates: start: 20171101
  7. ZOMORPH [Concomitant]
     Active Substance: MORPHINE SULFATE
     Dosage: 1 DF, Q12H
     Dates: start: 20170629
  8. DIOCTYL [Concomitant]
     Active Substance: DOCUSATE SODIUM
     Dosage: 4 DF, QD
     Dates: start: 20170117, end: 20171013
  9. ADCAL (CALCIUM CARBONATE) [Concomitant]
     Active Substance: CALCIUM CARBONATE
     Dosage: 2 DF, QD
     Dates: start: 20170725
  10. ATENOLOL. [Concomitant]
     Active Substance: ATENOLOL
     Dosage: 1 DF, EACH MORNING
     Dates: start: 20170725
  11. CHLORPHENAMINE [Concomitant]
     Active Substance: CHLORPHENIRAMINE MALEATE
     Indication: PRURITUS
     Dosage: 1 DF, THREE TIMES A DAY; AS NECESSARY
     Dates: start: 20170929, end: 20171008
  12. LANSOPRAZOLE. [Concomitant]
     Active Substance: LANSOPRAZOLE
     Dosage: 1 DF, QD
     Dates: start: 20170725

REACTIONS (5)
  - Oedema [Recovering/Resolving]
  - Gastrointestinal disorder [Recovering/Resolving]
  - Cyanosis [Recovering/Resolving]
  - Dyspnoea [Recovering/Resolving]
  - Alopecia [Recovered/Resolved]

NARRATIVE: CASE EVENT DATE: 20171101
